FAERS Safety Report 20047243 (Version 1)
Quarter: 2021Q4

REPORT INFORMATION
  Report Type: Spontaneous
  Country: FR (occurrence: FR)
  Receive Date: 20211109
  Receipt Date: 20211109
  Transmission Date: 20220303
  Serious: Yes (Hospitalization, Congenital Anomaly, Other)
  Sender: FDA-Public Use
  Company Number: FR-ABBVIE-21K-056-4145959-00

PATIENT
  Sex: Male
  Weight: 2.93 kg

DRUGS (2)
  1. VALPROATE SODIUM [Suspect]
     Active Substance: VALPROATE SODIUM
     Indication: Maternal exposure timing unspecified
     Route: 064
  2. FOLIC ACID [Concomitant]
     Active Substance: FOLIC ACID
     Indication: Product used for unknown indication

REACTIONS (26)
  - Bronchiolitis [Unknown]
  - Ear infection [Unknown]
  - Gastroenteritis [Unknown]
  - Otitis media acute [Unknown]
  - Developmental delay [Unknown]
  - Language disorder [Unknown]
  - Behaviour disorder [Unknown]
  - Learning disorder [Unknown]
  - Intellectual disability [Unknown]
  - Dysmorphism [Unknown]
  - Craniosynostosis [Unknown]
  - Coordination abnormal [Unknown]
  - Balance disorder [Unknown]
  - Learning disorder [Unknown]
  - Dysgraphia [Unknown]
  - Reading disorder [Unknown]
  - Reading disorder [Unknown]
  - Speech disorder [Unknown]
  - Learning disorder [Unknown]
  - Unevaluable event [Unknown]
  - Hypotelorism of orbit [Unknown]
  - Gait disturbance [Unknown]
  - Hypotelorism of orbit [Unknown]
  - Tympanic membrane perforation [Unknown]
  - Cough [Unknown]
  - Foetal exposure during pregnancy [Unknown]
